FAERS Safety Report 8068477 (Version 3)
Quarter: 2021Q1

REPORT INFORMATION
  Report Type: Spontaneous
  Country: US (occurrence: US)
  Receive Date: 20110616
  Receipt Date: 20210118
  Transmission Date: 20210420
  Serious: Yes (Other)
  Sender: FDA-Public Use
  Company Number: US-BRACCO-006312

PATIENT
  Sex: Male

DRUGS (2)
  1. CARDIOGEN?82 [Suspect]
     Active Substance: RUBIDIUM CHLORIDE RB-82
     Indication: POSITRON EMISSION TOMOGRAM
  2. CARDIOGEN?82 [Suspect]
     Active Substance: RUBIDIUM CHLORIDE RB-82
     Indication: ANGIOGRAM
     Route: 042
     Dates: start: 20110314, end: 20110314

REACTIONS (1)
  - Exposure to radiation [Unknown]

NARRATIVE: CASE EVENT DATE: 20110314
